FAERS Safety Report 5362390-5 (Version None)
Quarter: 2007Q2

REPORT INFORMATION
  Report Type: 
  Country: None (occurrence: None)
  Receive Date: 20070619
  Receipt Date: 20070606
  Transmission Date: 20071010
  Serious: Yes (Other)
  Sender: FDA-Public Use
  Company Number: GB-ASTRAZENECA-2007GB01200

PATIENT
  Age: 52 Year
  Sex: Female

DRUGS (5)
  1. OMEPRAZOLE [Suspect]
     Indication: GASTRITIS
     Route: 048
     Dates: start: 20070510, end: 20070517
  2. OMEPRAZOLE [Suspect]
     Route: 048
  3. CITALOPRAM HYDROBROMIDE [Concomitant]
     Route: 048
     Dates: start: 20030305
  4. FUROSEMIDE [Concomitant]
     Route: 048
     Dates: start: 20050426
  5. LISINOPRIL [Concomitant]
     Route: 048
     Dates: start: 20050111

REACTIONS (1)
  - SWELLING FACE [None]
